FAERS Safety Report 9900717 (Version 2)
Quarter: 2014Q1

REPORT INFORMATION
  Report Type: Spontaneous
  Country: BR (occurrence: BR)
  Receive Date: 20140217
  Receipt Date: 20140306
  Transmission Date: 20141002
  Serious: Yes (Life-Threatening)
  Sender: FDA-Public Use
  Company Number: BR-ROCHE-1345851

PATIENT
  Age: 32 Year
  Sex: Female
  Weight: 50 kg

DRUGS (5)
  1. HERCEPTIN [Suspect]
     Indication: BREAST CANCER
     Route: 042
  2. HERCEPTIN [Suspect]
     Route: 042
     Dates: start: 20140123, end: 20140123
  3. DIFENIDRIN [Concomitant]
  4. DECADRON [Concomitant]
  5. CIMETIDINE [Concomitant]

REACTIONS (1)
  - Infusion related reaction [Recovering/Resolving]
